FAERS Safety Report 21818884 (Version 1)
Quarter: 2023Q1

REPORT INFORMATION
  Report Type: Spontaneous
  Country: GB (occurrence: GB)
  Receive Date: 20230104
  Receipt Date: 20230104
  Transmission Date: 20230418
  Serious: Yes (Other)
  Sender: FDA-Public Use
  Company Number: None

PATIENT
  Age: 78 Year
  Sex: Female
  Weight: 51 kg

DRUGS (7)
  1. FAMOTIDINE [Suspect]
     Active Substance: FAMOTIDINE
     Indication: Product used for unknown indication
     Dosage: 20 MILLIGRAM
     Route: 065
     Dates: start: 20221223
  2. ACIDEX ADVANCE [Concomitant]
     Dosage: UNK (5ML - 10ML)
     Route: 065
     Dates: start: 20220211
  3. ESTRADIOL [Concomitant]
     Active Substance: ESTRADIOL
     Dosage: UNK
     Route: 065
     Dates: start: 20210218
  4. FYBOGEL [Concomitant]
     Active Substance: HERBALS\PLANTAGO OVATA SEED
     Dosage: UNK (1-2 A DAY)
     Route: 065
     Dates: start: 20210218
  5. LEVOTHYROXINE [Concomitant]
     Active Substance: LEVOTHYROXINE
     Indication: Thyroid disorder
     Dosage: 1 DOSAGE FORM, QD (FOR THYROID)
     Route: 065
     Dates: start: 20210218
  6. NIZATIDINE [Concomitant]
     Active Substance: NIZATIDINE
     Dosage: 1 DOSAGE FORM, BID
     Route: 065
     Dates: start: 20221223
  7. RAMIPRIL [Concomitant]
     Active Substance: RAMIPRIL
     Dosage: 1 DOSAGE FORM, QD
     Route: 065
     Dates: start: 20221006

REACTIONS (2)
  - Blister [Unknown]
  - Urticaria [Unknown]

NARRATIVE: CASE EVENT DATE: 20221223
